FAERS Safety Report 25328710 (Version 2)
Quarter: 2025Q3

REPORT INFORMATION
  Report Type: Report from Study
  Country: US (occurrence: US)
  Receive Date: 20250519
  Receipt Date: 20250810
  Transmission Date: 20251020
  Serious: Yes (Hospitalization)
  Sender: ALEXION PHARMACEUTICALS
  Company Number: US-AstraZeneca-CH-00871291A

PATIENT
  Sex: Female
  Weight: 55.2 kg

DRUGS (1)
  1. CAPIVASERTIB [Suspect]
     Active Substance: CAPIVASERTIB
     Indication: Breast cancer female
     Dosage: 320 MILLIGRAM, BID, TAKE 2 TABLETS BY MOUTH TWICE DAILY FOR 4 DAYS ON, THEN 3 DAYS OFF EACH WEEK.
     Dates: start: 20250328

REACTIONS (3)
  - Blood pressure increased [Unknown]
  - Diarrhoea [Unknown]
  - Blood glucose fluctuation [Unknown]
